FAERS Safety Report 13446018 (Version 3)
Quarter: 2017Q2

REPORT INFORMATION
  Report Type: Spontaneous
  Country: US (occurrence: US)
  Receive Date: 20170417
  Receipt Date: 20170422
  Transmission Date: 20170830
  Serious: Yes (Hospitalization, Other)
  Sender: FDA-Public Use
  Company Number: US-TORRENT-00002665

PATIENT
  Age: 20 Year
  Sex: Male

DRUGS (5)
  1. HALOPERIDOL. [Suspect]
     Active Substance: HALOPERIDOL
  2. LORAZEPAM. [Suspect]
     Active Substance: LORAZEPAM
  3. OLANZAPINE. [Suspect]
     Active Substance: OLANZAPINE
  4. LITHIUM. [Suspect]
     Active Substance: LITHIUM
  5. RISPERIDONE. [Suspect]
     Active Substance: RISPERIDONE

REACTIONS (13)
  - Abdominal discomfort [Recovered/Resolved]
  - Seizure [Recovered/Resolved]
  - Somnolence [Recovered/Resolved]
  - Hallucination [Recovered/Resolved]
  - Somatic hallucination [Recovered/Resolved]
  - Cognitive disorder [Recovering/Resolving]
  - Temporal lobe epilepsy [Recovered/Resolved]
  - Tremor [Recovered/Resolved]
  - Headache [Unknown]
  - Hallucination, olfactory [Recovered/Resolved]
  - Fatigue [Unknown]
  - Acne [Recovered/Resolved]
  - Hallucination, auditory [Recovered/Resolved]
